FAERS Safety Report 4563914-8 (Version None)
Quarter: 2005Q1

REPORT INFORMATION
  Report Type: 
  Country: None (occurrence: None)
  Receive Date: 20050121
  Receipt Date: 20050107
  Transmission Date: 20050727
  Serious: Yes (Hospitalization, Other)
  Sender: FDA-Public Use
  Company Number: 031-0981-990081

PATIENT
  Age: 64 Year
  Sex: Male
  Weight: 97 kg

DRUGS (4)
  1. ATORVASTATIN              (ATORVASTATIN) [Suspect]
     Indication: HYPERLIPIDAEMIA
     Dosage: 10 MG (DAILY), ORAL
     Route: 048
     Dates: start: 19990602, end: 19990629
  2. METOPROLOL TARTRATE [Concomitant]
  3. ACETYLSALICYLIC ACID SRT [Concomitant]
  4. SIMVASTATIN [Concomitant]

REACTIONS (17)
  - ATELECTASIS [None]
  - BODY TEMPERATURE INCREASED [None]
  - DISEASE RECURRENCE [None]
  - DYSPNOEA [None]
  - GASTRIC CANCER [None]
  - GASTROOESOPHAGEAL REFLUX DISEASE [None]
  - HEPATIC CYST [None]
  - HYPERHIDROSIS [None]
  - LUNG INFILTRATION [None]
  - LYMPHOMA [None]
  - MEDIASTINUM NEOPLASM [None]
  - METASTASES TO LYMPH NODES [None]
  - OESOPHAGEAL ADENOCARCINOMA [None]
  - PULMONARY HILUM MASS [None]
  - THERAPY NON-RESPONDER [None]
  - VOMITING [None]
  - WEIGHT DECREASED [None]
